FAERS Safety Report 8399213-6 (Version None)
Quarter: 2012Q2

REPORT INFORMATION
  Report Type: 
  Country: None (occurrence: None)
  Receive Date: 20120531
  Receipt Date: 20120524
  Transmission Date: 20120825
  Serious: Yes (Hospitalization, Other)
  Sender: FDA-Public Use
  Company Number: US-GLAXOSMITHKLINE-A0943793A

PATIENT
  Age: 61 Year
  Sex: Male
  Weight: 105.5 kg

DRUGS (6)
  1. HYDROCHLOROTHIAZIDE [Concomitant]
  2. NORVASC [Concomitant]
  3. AMARYL [Concomitant]
  4. AVANDAMET [Suspect]
     Indication: DIABETES MELLITUS
     Dosage: 2TAB IN THE MORNING
     Route: 048
     Dates: start: 20070101, end: 20070101
  5. AVANDIA [Suspect]
     Indication: DIABETES MELLITUS
     Dosage: 4MG PER DAY
     Route: 048
     Dates: start: 20070226, end: 20100223
  6. JANUMET [Concomitant]

REACTIONS (4)
  - ACUTE CORONARY SYNDROME [None]
  - DEPRESSION [None]
  - MYOCARDIAL INFARCTION [None]
  - CORONARY ARTERY DISEASE [None]
